FAERS Safety Report 8199518-8 (Version None)
Quarter: 2012Q1

REPORT INFORMATION
  Report Type: 
  Country: None (occurrence: None)
  Receive Date: 20120310
  Receipt Date: 20120305
  Transmission Date: 20120608
  Serious: No
  Sender: FDA-Public Use
  Company Number: US-PFIZER INC-2012049507

PATIENT
  Sex: Male

DRUGS (3)
  1. NEURONTIN [Suspect]
     Dosage: 300 MG, (4 PILLS) 4X/DAY
  2. NEURONTIN [Suspect]
     Dosage: 600 MG, (300MG, 2 PILLS) 1X/DAY
  3. ACCUPRIL [Suspect]
     Dosage: UNK

REACTIONS (2)
  - INSOMNIA [None]
  - PAIN [None]
